FAERS Safety Report 22271758 (Version 1)
Quarter: 2023Q2

REPORT INFORMATION
  Report Type: Report from Study
  Country: FR (occurrence: FR)
  Receive Date: 20230502
  Receipt Date: 20230502
  Transmission Date: 20230721
  Serious: No
  Sender: FDA-Public Use
  Company Number: FR-TAKEDA-2023TUS041081

PATIENT
  Age: 34 Year
  Sex: Male

DRUGS (11)
  1. TEDUGLUTIDE [Suspect]
     Active Substance: TEDUGLUTIDE
     Indication: Short-bowel syndrome
     Dosage: 3.15 MILLIGRAM, QD
     Route: 042
     Dates: start: 20161105, end: 20190409
  2. TEDUGLUTIDE [Suspect]
     Active Substance: TEDUGLUTIDE
     Indication: Short-bowel syndrome
     Dosage: 3.15 MILLIGRAM, QD
     Route: 042
     Dates: start: 20161105, end: 20190409
  3. TEDUGLUTIDE [Suspect]
     Active Substance: TEDUGLUTIDE
     Indication: Short-bowel syndrome
     Dosage: 3.15 MILLIGRAM, QD
     Route: 042
     Dates: start: 20161105, end: 20190409
  4. TEDUGLUTIDE [Suspect]
     Active Substance: TEDUGLUTIDE
     Indication: Short-bowel syndrome
     Dosage: 3.15 MILLIGRAM, QD
     Route: 042
     Dates: start: 20161105, end: 20190409
  5. TEDUGLUTIDE [Suspect]
     Active Substance: TEDUGLUTIDE
     Dosage: 3.15 MILLIGRAM, QD
     Route: 042
     Dates: start: 20190415
  6. TEDUGLUTIDE [Suspect]
     Active Substance: TEDUGLUTIDE
     Dosage: 3.15 MILLIGRAM, QD
     Route: 042
     Dates: start: 20190415
  7. TEDUGLUTIDE [Suspect]
     Active Substance: TEDUGLUTIDE
     Dosage: 3.15 MILLIGRAM, QD
     Route: 042
     Dates: start: 20190415
  8. TEDUGLUTIDE [Suspect]
     Active Substance: TEDUGLUTIDE
     Dosage: 3.15 MILLIGRAM, QD
     Route: 042
     Dates: start: 20190415
  9. AMOXICILLIN [Concomitant]
     Active Substance: AMOXICILLIN
     Indication: Gastrooesophageal reflux disease
     Dosage: UNK
     Route: 065
     Dates: start: 202003, end: 202004
  10. MUCOMYST [Concomitant]
     Active Substance: ACETYLCYSTEINE
     Indication: Gastrooesophageal reflux disease
     Dosage: 200 MILLIGRAM
     Route: 048
     Dates: start: 202003, end: 202004
  11. ALGELDRATE;SODIUM ALGINATE [Concomitant]
     Indication: Gastrooesophageal reflux disease
     Dosage: UNK
     Route: 048
     Dates: start: 202003, end: 202004

REACTIONS (1)
  - Duodenal polyp [Not Recovered/Not Resolved]

NARRATIVE: CASE EVENT DATE: 20211001
